FAERS Safety Report 24250389 (Version 3)
Quarter: 2024Q3

REPORT INFORMATION
  Report Type: Spontaneous
  Country: NI (occurrence: NI)
  Receive Date: 20240826
  Receipt Date: 20240913
  Transmission Date: 20241017
  Serious: Yes (Other)
  Sender: BAYER
  Company Number: NI-BAYER-2024A122080

PATIENT
  Age: 41 Year
  Sex: Female

DRUGS (1)
  1. ULTRAVIST [Suspect]
     Active Substance: IOPROMIDE
     Indication: Computerised tomogram abdomen
     Dosage: 255 MG, (85 ML), ONCE
     Route: 042
     Dates: start: 20240817, end: 20240817

REACTIONS (12)
  - Anaphylactic shock [Recovered/Resolved]
  - Contrast media allergy [Recovered/Resolved]
  - Cough [Recovered/Resolved]
  - Dizziness [Recovered/Resolved]
  - Nausea [Recovered/Resolved]
  - Loss of consciousness [Recovered/Resolved]
  - Urinary incontinence [Recovered/Resolved]
  - Anal incontinence [Recovered/Resolved]
  - Disorientation [Recovered/Resolved]
  - Generalised tonic-clonic seizure [Recovered/Resolved]
  - Rash erythematous [Recovered/Resolved]
  - Hypotension [Recovered/Resolved]

NARRATIVE: CASE EVENT DATE: 20240817
